FAERS Safety Report 9532201 (Version 2)
Quarter: 2013Q4

REPORT INFORMATION
  Report Type: Spontaneous
  Country: BR (occurrence: BR)
  Receive Date: 20130918
  Receipt Date: 20131029
  Transmission Date: 20140711
  Serious: Yes (Other)
  Sender: FDA-Public Use
  Company Number: BR-ELI_LILLY_AND_COMPANY-BR201309001862

PATIENT
  Sex: Male

DRUGS (4)
  1. HUMULIN N [Suspect]
     Indication: TYPE 1 DIABETES MELLITUS
     Dosage: 10 IU, EACH EVENING
     Route: 065
     Dates: start: 2012
  2. HUMULIN N [Suspect]
     Dosage: 25 IU, EACH EVENING
     Route: 065
  3. HUMULIN N [Suspect]
     Dosage: 34 IU, EACH EVENING
     Route: 065
  4. HUMULIN N [Suspect]
     Dosage: 34 IU, EACH MORNING
     Route: 065
     Dates: start: 2012

REACTIONS (3)
  - Visual impairment [Unknown]
  - Inappropriate schedule of drug administration [Unknown]
  - Feeling abnormal [Unknown]
